FAERS Safety Report 5466865-X (Version None)
Quarter: 2007Q3

REPORT INFORMATION
  Report Type: 
  Country: None (occurrence: None)
  Receive Date: 20070925
  Receipt Date: 20070918
  Transmission Date: 20080115
  Serious: Yes (Life-Threatening)
  Sender: FDA-Public Use
  Company Number: IT-ASTRAZENECA-2007SE03612

PATIENT
  Age: 76 Year
  Sex: Female
  Weight: 57 kg

DRUGS (6)
  1. FASLODEX [Suspect]
     Indication: BREAST CANCER
     Route: 030
     Dates: start: 20070315, end: 20070607
  2. ANASTROZOLE [Suspect]
     Indication: BREAST CANCER
     Route: 048
     Dates: start: 20070315, end: 20070617
  3. KARVEZIDE [Concomitant]
     Indication: HYPERTENSION
     Route: 048
  4. IPERTEN [Concomitant]
     Indication: HYPERTENSION
     Route: 048
  5. PLACTIDIL [Concomitant]
     Indication: PROPHYLAXIS
     Route: 048
  6. SINVACOR [Concomitant]
     Indication: HYPERCHOLESTEROLAEMIA
     Route: 048

REACTIONS (1)
  - MYOCARDIAL INFARCTION [None]
